FAERS Safety Report 7957872-3 (Version None)
Quarter: 2011Q4

REPORT INFORMATION
  Report Type: 
  Country: None (occurrence: None)
  Receive Date: 20111201
  Receipt Date: 20111122
  Transmission Date: 20120403
  Serious: Yes (Other)
  Sender: FDA-Public Use
  Company Number: AUR-APL-2011-05912

PATIENT
  Age: 49 Year
  Sex: Male
  Weight: 90.5 kg

DRUGS (5)
  1. AMLODIPINE [Concomitant]
  2. OMEPRAZOLE [Concomitant]
  3. NAPROXEN [Suspect]
     Indication: PRODUCT USED FOR UNKNOWN INDICATION
     Dates: start: 20111116
  4. ALLOPURINOL [Concomitant]
  5. GAVISCON (GAVISCON /00237601/) [Concomitant]

REACTIONS (3)
  - EYE SWELLING [None]
  - EYELID OEDEMA [None]
  - EYE PRURITUS [None]
